FAERS Safety Report 7806841-2 (Version None)
Quarter: 2011Q4

REPORT INFORMATION
  Report Type: 
  Country: None (occurrence: None)
  Receive Date: 20111011
  Receipt Date: 20110926
  Transmission Date: 20120403
  Serious: Yes (Hospitalization, Other)
  Sender: FDA-Public Use
  Company Number: BR-BIOGENIDEC-2008BI023536

PATIENT
  Age: 51 Year
  Sex: Female

DRUGS (6)
  1. BACLOFEN [Concomitant]
     Indication: MUSCLE RELAXANT THERAPY
  2. BACLOFEN [Concomitant]
     Indication: TREMOR
  3. ASCORBIC ACID [Concomitant]
  4. ATENOLOL [Concomitant]
     Indication: HYPERTENSION
  5. BACLOFEN [Concomitant]
     Indication: MUSCLE SPASMS
  6. AVONEX [Suspect]
     Indication: MULTIPLE SCLEROSIS
     Route: 030
     Dates: start: 20040101

REACTIONS (23)
  - CRYING [None]
  - SOMNOLENCE [None]
  - URINARY TRACT INFECTION [None]
  - ANKLE FRACTURE [None]
  - CYSTITIS [None]
  - LOWER LIMB FRACTURE [None]
  - FOOT DEFORMITY [None]
  - INFLUENZA LIKE ILLNESS [None]
  - MULTIPLE SCLEROSIS [None]
  - TREMOR [None]
  - INFECTION [None]
  - HAEMANGIOMA [None]
  - PAIN IN EXTREMITY [None]
  - PAIN [None]
  - IMPAIRED HEALING [None]
  - AGGRESSION [None]
  - MOBILITY DECREASED [None]
  - SENSATION OF HEAVINESS [None]
  - MUSCLE SPASMS [None]
  - PATIENT-DEVICE INCOMPATIBILITY [None]
  - FAMILY STRESS [None]
  - GAIT DISTURBANCE [None]
  - MUSCULOSKELETAL DISORDER [None]
